FAERS Safety Report 7314361-7 (Version None)
Quarter: 2011Q1

REPORT INFORMATION
  Report Type: 
  Country: None (occurrence: None)
  Receive Date: 20110225
  Receipt Date: 20101015
  Transmission Date: 20110831
  Serious: No
  Sender: FDA-Public Use
  Company Number: US-MYLANLABS-2010S1013863

PATIENT
  Age: 31 Year
  Sex: Female

DRUGS (2)
  1. AMNESTEEM [Suspect]
     Indication: ACNE
     Dates: start: 20100528, end: 20100728
  2. MODICON [Concomitant]
     Dates: start: 20100301

REACTIONS (4)
  - VISUAL IMPAIRMENT [None]
  - ARTHRALGIA [None]
  - PAIN IN EXTREMITY [None]
  - BONE PAIN [None]
